FAERS Safety Report 5002470-7 (Version None)
Quarter: 2006Q2

REPORT INFORMATION
  Report Type: 
  Country: None (occurrence: None)
  Receive Date: 20060515
  Receipt Date: 20060505
  Transmission Date: 20061013
  Serious: Yes (Hospitalization)
  Sender: FDA-Public Use
  Company Number: US-MERCK-0605USA01610

PATIENT
  Age: 74 Year
  Sex: Male
  Weight: 105 kg

DRUGS (7)
  1. PLAVIX [Concomitant]
     Route: 065
  2. ZOCOR [Concomitant]
     Route: 065
  3. FLOMAX [Concomitant]
     Route: 065
  4. VIOXX [Suspect]
     Indication: ARTHRALGIA
     Route: 048
     Dates: start: 20010401, end: 20040201
  5. METOPROLOL [Concomitant]
     Route: 065
  6. ALTACE [Concomitant]
     Route: 065
  7. ASPIRIN [Concomitant]
     Route: 065

REACTIONS (1)
  - MYOCARDIAL INFARCTION [None]
